FAERS Safety Report 6697240-8 (Version None)
Quarter: 2010Q2

REPORT INFORMATION
  Report Type: 
  Country: None (occurrence: None)
  Receive Date: 20100426
  Receipt Date: 20100414
  Transmission Date: 20101027
  Serious: Yes (Other)
  Sender: FDA-Public Use
  Company Number: US-PFIZER INC-2010047988

PATIENT
  Sex: Female
  Weight: 61.224 kg

DRUGS (3)
  1. GEODON [Suspect]
     Indication: BIPOLAR DISORDER
     Dosage: 40 MG, 2X/DAY
     Dates: start: 20100404, end: 20100413
  2. LAMICTAL [Concomitant]
     Dosage: 50 MG, UNK
     Dates: start: 20091201
  3. ACETYLSALICYLIC ACID [Concomitant]
     Dosage: PERIODICALLY

REACTIONS (10)
  - ANGER [None]
  - CRYING [None]
  - DIARRHOEA [None]
  - DISTURBANCE IN ATTENTION [None]
  - FEELING HOT [None]
  - INSOMNIA [None]
  - PALPITATIONS [None]
  - PANIC REACTION [None]
  - REFLEXES ABNORMAL [None]
  - SOMNOLENCE [None]
